FAERS Safety Report 6747160-5 (Version None)
Quarter: 2010Q2

REPORT INFORMATION
  Report Type: 
  Country: None (occurrence: None)
  Receive Date: 20100528
  Receipt Date: 20100518
  Transmission Date: 20101027
  Serious: Yes (Hospitalization, Other)
  Sender: FDA-Public Use
  Company Number: US-PFIZER INC-2010044760

PATIENT
  Sex: Female
  Weight: 90.703 kg

DRUGS (15)
  1. CHANTIX [Suspect]
     Indication: SMOKING CESSATION THERAPY
     Dosage: 0.5 MG, 1X/DAY
     Route: 048
     Dates: start: 20100325, end: 20100301
  2. CHANTIX [Suspect]
     Dosage: 0.5 MG, 2X/DAY
     Route: 048
     Dates: start: 20100301, end: 20100331
  3. ALBUTEROL [Concomitant]
     Indication: ASTHMA
     Dosage: UNK, AS NEEDED
  4. ATROVENT [Concomitant]
     Indication: ASTHMA
     Dosage: UNK,AS NEEDED
  5. WARFARIN [Concomitant]
     Dosage: 2.5 MG W, SAT/5 MG OTHER DAYS
     Dates: start: 19900101
  6. PERCOCET [Concomitant]
     Dosage: UNK, AS NEEDED
  7. IBANDRONATE SODIUM [Concomitant]
     Dosage: 150 MG, MONTHLY
  8. ZOCOR [Concomitant]
     Dosage: 20 MG, 1X/DAY
  9. OMEPRAZOLE [Concomitant]
     Dosage: 40 MG, DAILY
  10. MONTELUKAST [Concomitant]
     Dosage: 10 MG, DAILY
  11. POTASSIUM CHLORIDE [Concomitant]
     Dosage: 20 MEQ, DAILY
  12. NEURONTIN [Concomitant]
     Dosage: 300 MG, 3X/DAY
  13. FLUTICASONE [Concomitant]
     Dosage: 110 MCG, EVERY 12 HOURS AS NEEDED
  14. CHLORTHALIDONE [Concomitant]
     Dosage: 25 MG, DAILY
  15. DILTIAZEM [Suspect]
     Dosage: 180 MG, 1X/DAY

REACTIONS (21)
  - ANAEMIA [None]
  - ARTHRALGIA [None]
  - BACK PAIN [None]
  - CELLULITIS [None]
  - CHEST DISCOMFORT [None]
  - CONSTIPATION [None]
  - CONTUSION [None]
  - DEPRESSED MOOD [None]
  - DIARRHOEA [None]
  - ERYTHEMA [None]
  - GAIT DISTURBANCE [None]
  - HEADACHE [None]
  - MYALGIA [None]
  - NAUSEA [None]
  - NERVOUSNESS [None]
  - OEDEMA PERIPHERAL [None]
  - PAIN IN EXTREMITY [None]
  - PARAESTHESIA [None]
  - PRURITUS [None]
  - RASH [None]
  - VAGINAL HAEMORRHAGE [None]
